FAERS Safety Report 9394297 (Version 2)
Quarter: 2013Q4

REPORT INFORMATION
  Report Type: Spontaneous
  Country: IT (occurrence: IT)
  Receive Date: 20130711
  Receipt Date: 20131111
  Transmission Date: 20140711
  Serious: Yes (Other)
  Sender: FDA-Public Use
  Company Number: IT-ROCHE-1246623

PATIENT
  Age: 60 Year
  Sex: Female
  Weight: 47 kg

DRUGS (5)
  1. AVASTIN [Suspect]
     Indication: BREAST CANCER
     Route: 042
     Dates: start: 20130502, end: 20130521
  2. PACLITAXEL [Suspect]
     Indication: BREAST CANCER
     Route: 042
     Dates: start: 20130502, end: 20130521
  3. SOLDESAM [Concomitant]
     Route: 042
     Dates: start: 20130502, end: 20130521
  4. ONDANSETRON [Concomitant]
     Route: 042
     Dates: start: 20130502, end: 20130521
  5. RANIDIL [Concomitant]
     Route: 042
     Dates: start: 20130502, end: 20130521

REACTIONS (2)
  - Chest pain [Unknown]
  - Sensory loss [Unknown]
